FAERS Safety Report 7646802-X (Version None)
Quarter: 2011Q3

REPORT INFORMATION
  Report Type: 
  Country: None (occurrence: None)
  Receive Date: 20110729
  Receipt Date: 20110729
  Transmission Date: 20111222
  Serious: Yes (Other)
  Sender: FDA-Public Use
  Company Number: None

PATIENT
  Age: 73 Year
  Sex: Female
  Weight: 57.1532 kg

DRUGS (1)
  1. CYMBALTA [Suspect]
     Indication: BACK PAIN
     Dosage: 1 DAILY A WEEK ONCE DAILY THEN 2 DAILY
     Dates: start: 20110705

REACTIONS (11)
  - DIARRHOEA [None]
  - HYPOTENSION [None]
  - CONSTIPATION [None]
  - DRY MOUTH [None]
  - BALANCE DISORDER [None]
  - HAEMORRHOIDS [None]
  - POLLAKIURIA [None]
  - DECREASED APPETITE [None]
  - TREMOR [None]
  - NAUSEA [None]
  - HEADACHE [None]
